FAERS Safety Report 5750982-0 (Version None)
Quarter: 2008Q2

REPORT INFORMATION
  Report Type: 
  Country: None (occurrence: None)
  Receive Date: 20080528
  Receipt Date: 20080516
  Transmission Date: 20081010
  Serious: Yes (Hospitalization)
  Sender: FDA-Public Use
  Company Number: FR-GILEAD-2008-0016487

PATIENT
  Sex: Male
  Weight: 49 kg

DRUGS (7)
  1. TRUVADA [Suspect]
     Indication: HIV INFECTION
     Route: 048
     Dates: start: 20080502
  2. CORTANCYL [Suspect]
     Route: 048
     Dates: start: 20080428
  3. KALETRA [Concomitant]
     Indication: HIV INFECTION
     Route: 048
     Dates: start: 20080502
  4. BACTRIM [Concomitant]
     Indication: ANTIFUNGAL PROPHYLAXIS
     Route: 048
     Dates: start: 20080508
  5. ZELITREX [Concomitant]
     Route: 048
     Dates: start: 20080514
  6. TRIFLUCAN [Concomitant]
     Indication: CANDIDIASIS
     Dates: start: 20080514
  7. FOLINORAL [Concomitant]
     Indication: ANAEMIA
     Dates: start: 20080401

REACTIONS (3)
  - HYPOPHOSPHATAEMIA [None]
  - OESOPHAGEAL CANDIDIASIS [None]
  - ORAL CANDIDIASIS [None]
